FAERS Safety Report 23641941 (Version 2)
Quarter: 2024Q1

REPORT INFORMATION
  Report Type: Spontaneous
  Country: JP (occurrence: JP)
  Receive Date: 20240318
  Receipt Date: 20240327
  Transmission Date: 20240410
  Serious: Yes (Other)
  Sender: FDA-Public Use
  Company Number: JP-002147023-NVSJ2024JP003085

PATIENT
  Age: 12 Day
  Sex: Male

DRUGS (4)
  1. OCTREOTIDE ACETATE [Suspect]
     Active Substance: OCTREOTIDE ACETATE
     Indication: Chylothorax
     Dosage: UNK
     Route: 042
  2. OCTREOTIDE ACETATE [Suspect]
     Active Substance: OCTREOTIDE ACETATE
  3. OCTREOTIDE ACETATE [Suspect]
     Active Substance: OCTREOTIDE ACETATE
  4. METHYLPREDNISOLONE [Concomitant]
     Active Substance: METHYLPREDNISOLONE
     Indication: Chylothorax
     Dosage: UNK
     Route: 065

REACTIONS (4)
  - Chylothorax [Unknown]
  - Condition aggravated [Unknown]
  - Product use issue [Unknown]
  - Product use in unapproved indication [Unknown]
